FAERS Safety Report 9366770 (Version 1)
Quarter: 2013Q2

REPORT INFORMATION
  Report Type: Spontaneous
  Country: IT (occurrence: None)
  Receive Date: 20130620
  Receipt Date: 20130620
  Transmission Date: 20140414
  Serious: Yes (Other)
  Sender: FDA-Public Use
  Company Number: AUR-APL-2013-04818

PATIENT
  Age: 60 Year
  Sex: Male

DRUGS (2)
  1. PRAMIPEXOLE [Suspect]
     Indication: RESTLESS LEGS SYNDROME
  2. MIRTAZAPINE(MIRTAZAPINE) [Concomitant]

REACTIONS (3)
  - Agitation [None]
  - Restlessness [None]
  - Anxiety [None]
